FAERS Safety Report 8414502-4 (Version None)
Quarter: 2012Q2

REPORT INFORMATION
  Report Type: 
  Country: None (occurrence: None)
  Receive Date: 20120605
  Receipt Date: 20120529
  Transmission Date: 20120825
  Serious: Yes (Hospitalization)
  Sender: FDA-Public Use
  Company Number: CA-JNJFOC-20120520798

PATIENT
  Sex: Female

DRUGS (2)
  1. STELARA [Suspect]
     Route: 058
     Dates: start: 20120215
  2. STELARA [Suspect]
     Indication: PSORIASIS
     Route: 058
     Dates: start: 20111003

REACTIONS (2)
  - INTESTINAL OBSTRUCTION [None]
  - APPENDICITIS PERFORATED [None]
